FAERS Safety Report 4944843-4 (Version None)
Quarter: 2006Q1

REPORT INFORMATION
  Report Type: 
  Country: None (occurrence: None)
  Receive Date: 20060315
  Receipt Date: 20051229
  Transmission Date: 20060701
  Serious: Yes (Other)
  Sender: FDA-Public Use
  Company Number: US-MERCK-0512USA04093

PATIENT
  Age: 43 Year
  Sex: Male
  Weight: 95 kg

DRUGS (12)
  1. VIOXX [Suspect]
     Indication: MUSCLE INJURY
     Route: 048
     Dates: start: 20000424
  2. OXYIR [Concomitant]
     Route: 065
  3. OXYCONTIN [Concomitant]
     Route: 065
  4. OXYCONTIN [Concomitant]
     Route: 065
  5. BUSPAR [Concomitant]
     Route: 065
  6. EFFEXOR XR [Concomitant]
     Route: 065
  7. HERBS (UNSPECIFIED) [Concomitant]
     Route: 065
  8. FLEXERIL [Concomitant]
     Route: 065
  9. REMERON [Concomitant]
     Route: 065
  10. ZANAFLEX [Concomitant]
     Route: 065
  11. SENOKOT-S TABLETS [Concomitant]
     Route: 065
  12. PLAVIX [Concomitant]
     Route: 065

REACTIONS (11)
  - ANXIETY [None]
  - BLOOD CHOLESTEROL INCREASED [None]
  - BLOOD TRIGLYCERIDES INCREASED [None]
  - CAROTID ARTERY STENOSIS [None]
  - CEREBROVASCULAR ACCIDENT [None]
  - CHOLESTEATOMA [None]
  - DEPRESSION [None]
  - HERPES ZOSTER [None]
  - LIVER FUNCTION TEST ABNORMAL [None]
  - OTITIS MEDIA CHRONIC [None]
  - TYMPANIC MEMBRANE PERFORATION [None]
